FAERS Safety Report 16974666 (Version 1)
Quarter: 2019Q4

REPORT INFORMATION
  Report Type: Spontaneous
  Country: US (occurrence: US)
  Receive Date: 20191030
  Receipt Date: 20191030
  Transmission Date: 20200122
  Serious: Yes (Other)
  Sender: FDA-Public Use
  Company Number: US-CELGENEUS-USA-20191008884

PATIENT
  Age: 74 Year
  Sex: Female
  Weight: 67.92 kg

DRUGS (1)
  1. POMALYST [Suspect]
     Active Substance: POMALIDOMIDE
     Indication: PLASMA CELL MYELOMA
     Dosage: 3 MILLIGRAM
     Route: 048
     Dates: start: 20190916, end: 20191023

REACTIONS (1)
  - Bone marrow failure [Not Recovered/Not Resolved]

NARRATIVE: CASE EVENT DATE: 20191023
